FAERS Safety Report 18602035 (Version 2)
Quarter: 2021Q1

REPORT INFORMATION
  Report Type: Spontaneous
  Country: GR (occurrence: GR)
  Receive Date: 20201210
  Receipt Date: 20210108
  Transmission Date: 20210419
  Serious: Yes (Other)
  Sender: FDA-Public Use
  Company Number: GR-ALLERGAN-2047431US

PATIENT
  Sex: Female

DRUGS (3)
  1. MAXIDEX [Concomitant]
     Active Substance: DEXAMETHASONE
     Indication: UVEITIS
     Dosage: UNK
     Route: 047
  2. OZURDEX [Suspect]
     Active Substance: DEXAMETHASONE
     Indication: UVEITIS
     Dosage: 0.7 MG, SINGLE
     Route: 031
     Dates: start: 20201124, end: 20201124
  3. MEDROL [Concomitant]
     Active Substance: METHYLPREDNISOLONE
     Indication: UVEITIS
     Dosage: UNK
     Route: 048

REACTIONS (4)
  - Papilloedema [Unknown]
  - Visual acuity reduced [Unknown]
  - Hypotony of eye [Unknown]
  - Retinal oedema [Unknown]

NARRATIVE: CASE EVENT DATE: 20201128
